FAERS Safety Report 9551286 (Version 1)
Quarter: 2013Q3

REPORT INFORMATION
  Report Type: Spontaneous
  Country: FR (occurrence: FR)
  Receive Date: 20130925
  Receipt Date: 20130925
  Transmission Date: 20140515
  Serious: Yes (Hospitalization)
  Sender: FDA-Public Use
  Company Number: FR-ROCHE-1278389

PATIENT
  Age: 71 Year
  Sex: Male

DRUGS (37)
  1. MABTHERA [Suspect]
     Indication: B-CELL LYMPHOMA
     Dosage: FIRST CYCLE
     Route: 042
     Dates: start: 20111128
  2. MABTHERA [Suspect]
     Dosage: SECOND CYCLE
     Route: 042
     Dates: start: 20111219
  3. MABTHERA [Suspect]
     Dosage: THIRD CYCLE
     Route: 042
     Dates: start: 20120109
  4. MABTHERA [Suspect]
     Dosage: FOURTH CYCLE
     Route: 042
     Dates: start: 20120130
  5. MABTHERA [Suspect]
     Dosage: SIXTH CYCLE
     Route: 042
     Dates: start: 20120312
  6. MABTHERA [Suspect]
     Dosage: MAINTENANCE THERAPY
     Route: 042
     Dates: start: 20120702
  7. MABTHERA [Suspect]
     Dosage: MAINTENANCE THERAPY
     Route: 042
     Dates: start: 20120827
  8. MABTHERA [Suspect]
     Dosage: MAINTENANCE THERAPY
     Route: 042
     Dates: start: 20121022
  9. MABTHERA [Suspect]
     Dosage: MAINTENANCE THERAPY
     Route: 042
     Dates: start: 20121217
  10. MABTHERA [Suspect]
     Route: 042
     Dates: start: 20130210
  11. MABTHERA [Suspect]
     Dosage: FIRST CYCLE OF RITUXIMAB THERAPY ONLY
     Route: 042
     Dates: start: 20130402
  12. MABTHERA [Suspect]
     Dosage: FIFTH CYCLE
     Route: 042
  13. ENDOXAN [Suspect]
     Indication: B-CELL LYMPHOMA
     Dosage: FIRST CYCLE
     Route: 042
     Dates: start: 20111128
  14. ENDOXAN [Suspect]
     Dosage: SECOND CYCLE
     Route: 042
     Dates: start: 20111219
  15. ENDOXAN [Suspect]
     Dosage: THIRD CYCLE
     Route: 042
     Dates: start: 20120109
  16. ENDOXAN [Suspect]
     Dosage: FOURTH CYCLE
     Route: 042
     Dates: start: 20120130
  17. ENDOXAN [Suspect]
     Dosage: FIFTH CYCLE
     Route: 042
  18. ENDOXAN [Suspect]
     Dosage: SIXTH CYCLE
     Route: 042
     Dates: start: 20120312, end: 20120312
  19. CORTANCYL [Suspect]
     Indication: B-CELL LYMPHOMA
     Dosage: FIRST CYCLE
     Route: 048
     Dates: start: 20111128
  20. CORTANCYL [Suspect]
     Dosage: SECOND CYCLE
     Route: 048
     Dates: start: 20111219
  21. CORTANCYL [Suspect]
     Dosage: THIRD CYCLE
     Route: 048
     Dates: start: 20120109
  22. CORTANCYL [Suspect]
     Dosage: FOURTH CYCLE
     Route: 048
     Dates: start: 20120130
  23. CORTANCYL [Suspect]
     Dosage: FIFTH CYCLE
     Route: 048
  24. CORTANCYL [Suspect]
     Dosage: SIXTH CYCLE ON
     Route: 048
     Dates: start: 20120312, end: 20120312
  25. PEGYLATED LIPOSOMAL DOXORUBICIN [Suspect]
     Indication: B-CELL LYMPHOMA
     Dosage: FIRST CYCLE
     Route: 042
     Dates: start: 20111128
  26. PEGYLATED LIPOSOMAL DOXORUBICIN [Suspect]
     Dosage: SECOND CYCLE
     Route: 042
     Dates: start: 20111219
  27. PEGYLATED LIPOSOMAL DOXORUBICIN [Suspect]
     Dosage: THIRD CYCLE
     Route: 042
     Dates: start: 20120109
  28. PEGYLATED LIPOSOMAL DOXORUBICIN [Suspect]
     Dosage: FOURTH CYCLE ON
     Route: 042
     Dates: start: 20120130
  29. PEGYLATED LIPOSOMAL DOXORUBICIN [Suspect]
     Dosage: FIFTH CYCLE
     Route: 042
  30. PEGYLATED LIPOSOMAL DOXORUBICIN [Suspect]
     Dosage: SIXTH CYCLE
     Route: 042
     Dates: start: 20120312, end: 20120312
  31. ONCOVIN [Suspect]
     Indication: B-CELL LYMPHOMA
     Dosage: FIRST CYCLE
     Route: 042
     Dates: start: 20111128
  32. ONCOVIN [Suspect]
     Dosage: SECOND CYCLE
     Route: 042
     Dates: start: 20111219
  33. ONCOVIN [Suspect]
     Dosage: THIRD CYCLE
     Route: 042
     Dates: start: 20120109
  34. ONCOVIN [Suspect]
     Dosage: FOURTH CYCLE
     Route: 042
     Dates: start: 20120130
  35. ONCOVIN [Suspect]
     Dosage: FIFTH CYCLE
     Route: 042
  36. ONCOVIN [Suspect]
     Dosage: SIXTH CYCLE
     Route: 042
     Dates: start: 20120312, end: 20120312
  37. IRBESARTAN [Suspect]
     Indication: HYPERTENSION
     Dosage: LONG-TERM TREATMENT
     Route: 065
     Dates: start: 201004

REACTIONS (1)
  - Lung adenocarcinoma stage I [Not Recovered/Not Resolved]
